FAERS Safety Report 8509811 (Version 5)
Quarter: 2013Q2

REPORT INFORMATION
  Report Type: Report from Study
  Country: US (occurrence: US)
  Receive Date: 20120413
  Receipt Date: 20130627
  Transmission Date: 20140414
  Serious: Yes (Life-Threatening, Hospitalization)
  Sender: FDA-Public Use
  Company Number: PHHO2011US16515

PATIENT
  Age: 58 Year
  Sex: Male
  Weight: 75.74 kg

DRUGS (1)
  1. ILARIS [Suspect]
     Indication: GOUTY ARTHRITIS
     Dosage: 150 MG, UNK
     Route: 058
     Dates: start: 20110809

REACTIONS (1)
  - Wound infection staphylococcal [Recovered/Resolved]
